FAERS Safety Report 16767149 (Version 1)
Quarter: 2019Q3

REPORT INFORMATION
  Report Type: Spontaneous
  Country: US (occurrence: US)
  Receive Date: 20190715
  Receipt Date: 20190715
  Transmission Date: 20191005
  Serious: No
  Sender: FDA-Public Use
  Company Number: None

PATIENT
  Age: 80 Year
  Sex: Female

DRUGS (6)
  1. ATORVASTATIN 40MG TABLETS [Concomitant]
  2. CAPECITABINE 500MG TABLETS [Suspect]
     Active Substance: CAPECITABINE
     Indication: COLON CANCER
     Dosage: ?          OTHER DOSE:1500 TO 2000MG;?
     Route: 048
     Dates: start: 20190508
  3. GLUCOSAMINE [Concomitant]
     Active Substance: GLUCOSAMINE
  4. MULTIVITAMIN [Concomitant]
     Active Substance: VITAMINS
  5. OMEGA3 CAPSULES [Concomitant]
  6. CALCIUM PLUS VITAMIN D [Concomitant]
     Active Substance: CALCIUM\VITAMIN D

REACTIONS (2)
  - Diarrhoea [None]
  - Dehydration [None]

NARRATIVE: CASE EVENT DATE: 201906
